FAERS Safety Report 6097769-X (Version None)
Quarter: 2009Q1

REPORT INFORMATION
  Report Type: 
  Country: None (occurrence: None)
  Receive Date: 20090227
  Receipt Date: 20090223
  Transmission Date: 20090719
  Serious: Yes (Death)
  Sender: FDA-Public Use
  Company Number: US-GENENTECH-277957

PATIENT
  Age: 13 Year
  Sex: Female
  Weight: 44.444 kg

DRUGS (1)
  1. XOLAIR [Suspect]
     Indication: ASTHMA
     Dosage: UNK
     Dates: start: 20060101

REACTIONS (2)
  - ASTHMA [None]
  - CONVULSION [None]
